FAERS Safety Report 4922017-0 (Version None)
Quarter: 2006Q1

REPORT INFORMATION
  Report Type: 
  Country: None (occurrence: None)
  Receive Date: 20060224
  Receipt Date: 20060222
  Transmission Date: 20060701
  Serious: Yes (Hospitalization)
  Sender: FDA-Public Use
  Company Number: US-GLAXOSMITHKLINE-A0594704A

PATIENT
  Age: 77 Year
  Sex: Female

DRUGS (3)
  1. ECOTRIN REGULAR STRENGTH TABLETS [Suspect]
     Route: 048
     Dates: start: 20050101, end: 20060113
  2. ZOCOR [Concomitant]
  3. PROTONIX [Concomitant]

REACTIONS (5)
  - ABDOMINAL PAIN UPPER [None]
  - ASTHENIA [None]
  - DIARRHOEA [None]
  - FAECES DISCOLOURED [None]
  - HAEMATOCHEZIA [None]
